FAERS Safety Report 26042068 (Version 1)
Quarter: 2025Q4

REPORT INFORMATION
  Report Type: Spontaneous
  Country: US (occurrence: None)
  Receive Date: 20251113
  Receipt Date: 20251113
  Transmission Date: 20260117
  Serious: No
  Sender: FDA-CTU
  Company Number: None

PATIENT
  Age: 62 Year
  Sex: Female
  Weight: 73.8 kg

DRUGS (6)
  1. VENLAFAXINE HYDROCHLORIDE ER [Suspect]
     Active Substance: VENLAFAXINE HYDROCHLORIDE
     Indication: Depression
     Dosage: OTHER QUANTITY : 1 CAPSULE(S);?
     Route: 048
     Dates: start: 20010101
  2. LISINOPRIL [Concomitant]
     Active Substance: LISINOPRIL
  3. OMEPRAZOLE [Concomitant]
     Active Substance: OMEPRAZOLE
  4. ATORVASTATIN [Concomitant]
     Active Substance: ATORVASTATIN
  5. EFFEXOR XR [Concomitant]
     Active Substance: VENLAFAXINE HYDROCHLORIDE
  6. ADVIL [Concomitant]
     Active Substance: IBUPROFEN

REACTIONS (9)
  - Therapy interrupted [None]
  - Nausea [None]
  - Dizziness [None]
  - Paraesthesia [None]
  - Emotional disorder [None]
  - Depressed mood [None]
  - Anger [None]
  - Crying [None]
  - Withdrawal syndrome [None]

NARRATIVE: CASE EVENT DATE: 20251101
